FAERS Safety Report 8533538-6 (Version None)
Quarter: 2012Q3

REPORT INFORMATION
  Report Type: 
  Country: None (occurrence: None)
  Receive Date: 20120724
  Receipt Date: 20120709
  Transmission Date: 20120928
  Serious: Yes (Death)
  Sender: FDA-Public Use
  Company Number: US-PFIZER INC-2012146074

PATIENT
  Age: 80 Year
  Sex: Female

DRUGS (2)
  1. ZYVOX [Concomitant]
     Route: 048
  2. VANCOMYCIN HYCHLORIDE [Suspect]
     Dosage: UNK

REACTIONS (1)
  - DEATH [None]
